FAERS Safety Report 6283442-1 (Version None)
Quarter: 2009Q3

REPORT INFORMATION
  Report Type: 
  Country: None (occurrence: None)
  Receive Date: 20090724
  Receipt Date: 20090414
  Transmission Date: 20100115
  Serious: No
  Sender: FDA-Public Use
  Company Number: IT-ALEXION-A200900268

PATIENT

DRUGS (5)
  1. SOLIRIS [Suspect]
     Indication: PAROXYSMAL NOCTURNAL HAEMOGLOBINURIA
     Dosage: 600 MG, UNK
     Route: 042
     Dates: start: 20081231
  2. SOLIRIS [Suspect]
     Dosage: 900 MG, UNK
     Route: 042
     Dates: start: 20090120
  3. DELTACORTENE [Concomitant]
     Dosage: 5 MG, QD
     Route: 048
  4. DANAZOL [Concomitant]
     Dosage: 100 MG, QD
     Route: 058
  5. ATENOLOL [Concomitant]
     Dosage: 1/4 TABLET, QD
     Route: 048

REACTIONS (5)
  - ARTHRALGIA [None]
  - BREAST ENLARGEMENT [None]
  - HAEMOGLOBIN DECREASED [None]
  - MASTITIS [None]
  - PLATELET COUNT DECREASED [None]
